FAERS Safety Report 18458531 (Version 2)
Quarter: 2022Q2

REPORT INFORMATION
  Report Type: Report from Study
  Country: US (occurrence: US)
  Receive Date: 20201103
  Receipt Date: 20220627
  Transmission Date: 20220721
  Serious: Yes (Hospitalization, Other)
  Sender: FDA-Public Use
  Company Number: US-TAKEDA-US201845012

PATIENT
  Age: 58 Year
  Sex: Male
  Weight: 53 kg

DRUGS (12)
  1. TEDUGLUTIDE [Suspect]
     Active Substance: TEDUGLUTIDE
     Indication: Short-bowel syndrome
     Dosage: 2.4 MILLIGRAM, QD
     Route: 042
     Dates: start: 20140626, end: 20140901
  2. TEDUGLUTIDE [Suspect]
     Active Substance: TEDUGLUTIDE
     Indication: Short-bowel syndrome
     Dosage: 2.4 MILLIGRAM, QD
     Route: 042
     Dates: start: 20140626, end: 20140901
  3. TEDUGLUTIDE [Suspect]
     Active Substance: TEDUGLUTIDE
     Indication: Short-bowel syndrome
     Dosage: 2.4 MILLIGRAM, QD
     Route: 042
     Dates: start: 20140626, end: 20140901
  4. TEDUGLUTIDE [Suspect]
     Active Substance: TEDUGLUTIDE
     Indication: Short-bowel syndrome
     Dosage: 2.4 MILLIGRAM, QD
     Route: 042
     Dates: start: 20140626, end: 20140901
  5. DAPTOMYCIN [Concomitant]
     Active Substance: DAPTOMYCIN
     Indication: Arthritis
  6. DAPTOMYCIN [Concomitant]
     Active Substance: DAPTOMYCIN
     Indication: Bacteraemia
  7. ERAXIS [Concomitant]
     Active Substance: ANIDULAFUNGIN
     Indication: Bacteraemia
  8. NAFCILLIN [Concomitant]
     Active Substance: NAFCILLIN SODIUM
     Indication: Sepsis
  9. PREDNISOLONE ACETATE [Concomitant]
     Active Substance: PREDNISOLONE ACETATE
     Indication: Candida endophthalmitis
     Dosage: 1 MILLILITER, QD
     Route: 047
  10. SANDOSTATIN LAR DEPOT [Concomitant]
     Active Substance: OCTREOTIDE ACETATE
     Indication: Diarrhoea
     Dosage: 20 MILLIGRAM
     Route: 030
     Dates: start: 20180124
  11. VITAMINS [Concomitant]
     Active Substance: VITAMINS
     Indication: Short-bowel syndrome
     Dosage: 2 DOSAGE FORM, QD
     Route: 048
  12. ACETAMINOPHEN [Concomitant]
     Active Substance: ACETAMINOPHEN
     Indication: Arthritis bacterial
     Dosage: 325 MILLIGRAM
     Route: 048
     Dates: start: 20180305, end: 20190220

REACTIONS (4)
  - Candida endophthalmitis [Not Recovered/Not Resolved]
  - Arthritis bacterial [Not Recovered/Not Resolved]
  - Macular degeneration [Not Recovered/Not Resolved]
  - Diarrhoea [Not Recovered/Not Resolved]

NARRATIVE: CASE EVENT DATE: 20180101
